FAERS Safety Report 7530284-2 (Version None)
Quarter: 2011Q2

REPORT INFORMATION
  Report Type: 
  Country: None (occurrence: None)
  Receive Date: 20110531
  Receipt Date: 20110517
  Transmission Date: 20111010
  Serious: Yes (Death, Hospitalization)
  Sender: FDA-Public Use
  Company Number: 2011MA006016

PATIENT
  Age: 15 Month
  Sex: Male

DRUGS (3)
  1. VANCOMYCIN [Concomitant]
  2. RIFAMPIN [Suspect]
     Indication: STAPHYLOCOCCAL INFECTION
     Dosage: 10 MG/KG OD
  3. AMPICILLIN SODIUM [Concomitant]

REACTIONS (1)
  - PATHOGEN RESISTANCE [None]
